FAERS Safety Report 9029304 (Version 2)
Quarter: 2013Q1

REPORT INFORMATION
  Report Type: Spontaneous
  Country: JP (occurrence: JP)
  Receive Date: 20130124
  Receipt Date: 20130322
  Transmission Date: 20140127
  Serious: Yes (Hospitalization, Other)
  Sender: FDA-Public Use
  Company Number: JP-PFIZER INC-2013010015

PATIENT
  Age: 69 Year
  Sex: Female
  Weight: 44 kg

DRUGS (25)
  1. TORISEL [Suspect]
     Indication: METASTATIC RENAL CELL CARCINOMA
     Dosage: 25 MG, 1X/DAY
     Route: 042
     Dates: start: 20121204, end: 20121225
  2. LOXONIN [Concomitant]
     Indication: PAIN
     Dosage: 60 MG, 2X/DAY
     Route: 048
     Dates: start: 20121005, end: 20121030
  3. LOXONIN [Concomitant]
     Indication: PYREXIA
  4. NOVAMIN [Concomitant]
     Indication: NAUSEA
     Dosage: 5 MG, 3X/DAY
     Route: 048
     Dates: start: 20121005, end: 20121017
  5. OXYCONTIN [Concomitant]
     Indication: PAIN
     Dosage: 5 MG, 2X/WEEK
     Route: 048
     Dates: start: 20121005, end: 20121010
  6. FLOMOX [Concomitant]
     Indication: SKIN CANCER
     Dosage: 150 MG, 3X/DAY
     Route: 048
     Dates: start: 20121010, end: 20121020
  7. CYTOTEC [Concomitant]
     Indication: PROPHYLAXIS AGAINST GASTROINTESTINAL ULCER
     Dosage: 200 UG, 4X/DAY
     Route: 048
     Dates: start: 20121013
  8. TAKEPRON [Concomitant]
     Indication: GASTROOESOPHAGEAL REFLUX DISEASE
     Dosage: 15 MG, 1X/DAY
     Dates: start: 20121011
  9. INFREE [Concomitant]
     Indication: TUMOUR ASSOCIATED FEVER
     Dosage: 100 G, 4X/DAY
     Route: 048
     Dates: start: 20121120
  10. RINDERON [Concomitant]
     Indication: OEDEMA
     Dosage: 4 MG, 2X/DAY
     Dates: start: 20121103, end: 20121107
  11. RINDERON [Concomitant]
     Dosage: 3 MG, 2X/DAY
     Dates: start: 20121108, end: 20121112
  12. RINDERON [Concomitant]
     Dosage: 2 MG, 2X/DAY
     Dates: start: 20121113, end: 20121117
  13. RINDERON [Concomitant]
     Dosage: 1.5 MG, 2X/DAY
     Dates: start: 20121118, end: 20121122
  14. RINDERON [Concomitant]
     Dosage: 1 MG, 2X/DAY
     Dates: start: 20121123, end: 20121203
  15. RINDERON [Concomitant]
     Dosage: 1.5 MG, 1X/DAY
     Dates: start: 20121204, end: 20121210
  16. RINDERON [Concomitant]
     Dosage: 1 MG, 1X/DAY
     Dates: start: 20121211, end: 20121218
  17. RINDERON [Concomitant]
     Dosage: 0.5 MG, 1X/DAY
     Dates: start: 20121218
  18. DECADRON [Concomitant]
     Indication: METASTASES TO CENTRAL NERVOUS SYSTEM
     Dosage: 3.3 MG, UNK
     Dates: start: 20121011, end: 20121026
  19. DECADRON [Concomitant]
     Indication: OEDEMA
     Dosage: 1.65 MG, UNK
     Dates: start: 20121027, end: 20121030
  20. DECADRON [Concomitant]
     Dosage: 0.5 MG, 3X/DAY
     Route: 048
     Dates: start: 20121031, end: 20121107
  21. GLYCEREB [Concomitant]
     Indication: METASTASES TO CENTRAL NERVOUS SYSTEM
     Dosage: 200 ML, 2X/DAY
     Route: 041
     Dates: start: 20121011, end: 20121115
  22. GLYCEREB [Concomitant]
     Indication: OEDEMA
     Dosage: 200 ML, 1X/DAY
     Dates: start: 20121116, end: 20121121
  23. ELCITONIN [Concomitant]
     Indication: HYPERCALCAEMIA
     Dosage: 400 IU, 2X/DAY
     Route: 030
     Dates: start: 20121011, end: 20121015
  24. ZOMETA [Concomitant]
     Indication: HYPERCALCAEMIA
     Dosage: 4 MG, 1X/DAY
     Route: 041
     Dates: start: 20121016, end: 20121016
  25. ZOMETA [Concomitant]
     Dosage: 4 MG, 1X/DAY
     Route: 041
     Dates: start: 20121110, end: 20121112

REACTIONS (5)
  - Disease progression [Unknown]
  - Metastatic renal cell carcinoma [Unknown]
  - Interstitial lung disease [Recovered/Resolved]
  - Mouth ulceration [Not Recovered/Not Resolved]
  - Oral pain [Unknown]
